FAERS Safety Report 24119319 (Version 1)
Quarter: 2024Q3

REPORT INFORMATION
  Report Type: Spontaneous
  Country: JP (occurrence: None)
  Receive Date: 20240722
  Receipt Date: 20240722
  Transmission Date: 20241017
  Serious: Yes (Hospitalization)
  Sender: ORION
  Company Number: JP-Orion Corporation ORION PHARMA-ENTC2024-0087

PATIENT

DRUGS (1)
  1. STALEVO [Suspect]
     Active Substance: CARBIDOPA\ENTACAPONE\LEVODOPA
     Indication: Product used for unknown indication
     Dosage: STRENGTH: LCE: 100 MG; 10 MG; 100 MG

REACTIONS (2)
  - Dysphagia [Unknown]
  - Decubitus ulcer [Unknown]
